FAERS Safety Report 8241813-8 (Version None)
Quarter: 2012Q1

REPORT INFORMATION
  Report Type: 
  Country: None (occurrence: None)
  Receive Date: 20120328
  Receipt Date: 20120320
  Transmission Date: 20120608
  Serious: Yes (Hospitalization)
  Sender: FDA-Public Use
  Company Number: IT-ASTRAZENECA-2012SE17831

PATIENT
  Age: 79 Year
  Sex: Male

DRUGS (4)
  1. SEROQUEL [Suspect]
     Indication: ANXIETY
     Route: 048
  2. SEROQUEL [Suspect]
     Indication: DEPRESSION
     Route: 048
  3. PREGABALIN [Concomitant]
     Route: 048
  4. VENLAFAXINE [Concomitant]
     Indication: ABNORMAL BEHAVIOUR
     Route: 048

REACTIONS (1)
  - OCULAR MYASTHENIA [None]
